FAERS Safety Report 7806131-8 (Version None)
Quarter: 2011Q4

REPORT INFORMATION
  Report Type: 
  Country: None (occurrence: None)
  Receive Date: 20111011
  Receipt Date: 20111005
  Transmission Date: 20120403
  Serious: Yes (Other)
  Sender: FDA-Public Use
  Company Number: US-PFIZER INC-2011089224

PATIENT
  Sex: Female
  Weight: 99.32 kg

DRUGS (13)
  1. HYDROCODONE [Concomitant]
     Indication: FIBROMYALGIA
     Dosage: 57.5 MG, DAILY
     Route: 048
  2. FUROSEMIDE [Concomitant]
     Indication: FLUID RETENTION
     Dosage: 40 MG, DAILY
  3. LYRICA [Concomitant]
     Indication: FIBROMYALGIA
     Dosage: 150 MG, 3X/DAY
  4. CYMBALTA [Concomitant]
     Indication: DEPRESSION
     Dosage: 60 MG, DAILY
  5. CELEBREX [Suspect]
     Indication: ARTHRITIS
     Dosage: 200 MG, DAILY
     Route: 048
     Dates: start: 20110601, end: 20111003
  6. LISINOPRIL [Suspect]
     Indication: HYPERTENSION
     Dosage: ^50 MG^, DAILY
  7. NEXIUM [Concomitant]
     Indication: GASTROOESOPHAGEAL REFLUX DISEASE
     Dosage: 40 MG, DAILY
  8. NEXIUM [Concomitant]
     Indication: ULCER
  9. TYLENOL-500 [Suspect]
     Indication: PAIN
     Dosage: UNK
  10. HYDROCODONE [Concomitant]
     Indication: ARTHRITIS
     Dosage: 7.5/750 MG, AS NEEDED
  11. FUROSEMIDE [Concomitant]
     Dosage: 40 MG, 2X/DAY
  12. TAMSULOSIN HYDROCHLORIDE [Concomitant]
     Indication: BLADDER DISORDER
     Dosage: 0.4 MG, DAILY
  13. LEVOTHYROXINE [Concomitant]
     Indication: THYROID DISORDER
     Dosage: 50 MG, DAILY

REACTIONS (5)
  - SKIN DISORDER [None]
  - BLOOD PRESSURE DECREASED [None]
  - PRURITUS [None]
  - PAIN [None]
  - DRUG INEFFECTIVE [None]
